FAERS Safety Report 25169259 (Version 1)
Quarter: 2025Q2

REPORT INFORMATION
  Report Type: Spontaneous
  Country: GB (occurrence: GB)
  Receive Date: 20250407
  Receipt Date: 20250407
  Transmission Date: 20250717
  Serious: Yes (Hospitalization)
  Sender: TEVA
  Company Number: GB-TEVA-VS-3318409

PATIENT

DRUGS (1)
  1. COPAXONE [Suspect]
     Active Substance: GLATIRAMER ACETATE
     Indication: Product used for unknown indication
     Route: 065
     Dates: start: 20250331

REACTIONS (8)
  - Dyspnoea [Unknown]
  - Restless legs syndrome [Unknown]
  - Dry throat [Unknown]
  - Swelling face [Not Recovered/Not Resolved]
  - Eye swelling [Not Recovered/Not Resolved]
  - Accidental exposure to product [Unknown]
  - Sneezing [Unknown]
  - Device malfunction [Unknown]

NARRATIVE: CASE EVENT DATE: 20250331
